FAERS Safety Report 24656075 (Version 2)
Quarter: 2025Q3

REPORT INFORMATION
  Report Type: Spontaneous
  Country: US (occurrence: US)
  Receive Date: 20241124
  Receipt Date: 20250927
  Transmission Date: 20251020
  Serious: No
  Sender: SANOFI AVENTIS
  Company Number: US-SA-2024SA339687

PATIENT
  Age: 60 Year
  Sex: Female

DRUGS (18)
  1. DUPIXENT [Suspect]
     Active Substance: DUPILUMAB
     Indication: Dermatitis atopic
     Dosage: 300 MG, QOW
     Route: 058
     Dates: start: 202302
  2. DUPIXENT [Suspect]
     Active Substance: DUPILUMAB
     Indication: Nasal polyps
  3. IPRATROPIUM [Concomitant]
     Active Substance: IPRATROPIUM
  4. JARDIANCE [Concomitant]
     Active Substance: EMPAGLIFLOZIN
  5. HYDROXYZINE [Concomitant]
     Active Substance: HYDROXYZINE HYDROCHLORIDE
  6. ZESTRIL [Concomitant]
     Active Substance: LISINOPRIL
  7. PANTOPRAZOLE [Concomitant]
     Active Substance: PANTOPRAZOLE
  8. FLUTICASONE [Concomitant]
     Active Substance: FLUTICASONE
  9. SPIRONOLACTONE [Concomitant]
     Active Substance: SPIRONOLACTONE
  10. SERTRALINE [Concomitant]
     Active Substance: SERTRALINE HYDROCHLORIDE
  11. SPIRIVA [Concomitant]
     Active Substance: TIOTROPIUM BROMIDE MONOHYDRATE
  12. CLOPIDOGREL [Concomitant]
     Active Substance: CLOPIDOGREL BISULFATE
  13. CETIRIZINE [Concomitant]
     Active Substance: CETIRIZINE HYDROCHLORIDE
  14. CARAFATE [Concomitant]
     Active Substance: SUCRALFATE
  15. AZELASTINE [Concomitant]
     Active Substance: AZELASTINE
  16. ATROVENT [Concomitant]
     Active Substance: IPRATROPIUM BROMIDE
  17. ATORVASTATIN [Concomitant]
     Active Substance: ATORVASTATIN
  18. FLUOCINOLONE [Concomitant]
     Active Substance: FLUOCINOLONE

REACTIONS (1)
  - Dermatitis atopic [Unknown]
